FAERS Safety Report 6801865-6 (Version None)
Quarter: 2010Q2

REPORT INFORMATION
  Report Type: 
  Country: None (occurrence: None)
  Receive Date: 20100629
  Receipt Date: 20100621
  Transmission Date: 20101027
  Serious: Yes (Other)
  Sender: FDA-Public Use
  Company Number: US-PFIZER INC-2010078225

PATIENT
  Sex: Male
  Weight: 90.703 kg

DRUGS (9)
  1. NEURONTIN [Interacting]
     Indication: NEUROPATHY PERIPHERAL
     Dosage: UNK
     Route: 048
     Dates: start: 20050101
  2. METFORMIN HCL [Suspect]
     Indication: DIABETES MELLITUS
     Dosage: UNK
  3. GABAPENTIN [Suspect]
     Indication: NEUROPATHY PERIPHERAL
     Dosage: 800 MG, 4X/DAY
     Route: 048
     Dates: start: 20100101
  4. FENTANYL [Suspect]
     Indication: NEUROPATHY PERIPHERAL
     Dosage: 0.25 MG, EVERY 3 DAYS
     Route: 062
  5. KEFLEX [Suspect]
     Indication: SINUSITIS
     Dosage: 500 MG, 3X/DAY
     Route: 048
  6. KEFLEX [Suspect]
     Indication: PYREXIA
  7. VICODIN [Interacting]
     Indication: NEUROPATHY PERIPHERAL
     Dosage: 10/650 MG, 3X/DAY
     Route: 048
  8. LANTUS [Concomitant]
     Indication: DIABETES MELLITUS
     Dosage: UNK, 1X/DAY
     Route: 030
  9. HUMALOG [Concomitant]
     Indication: DIABETES MELLITUS
     Dosage: UNK, 1X/DAY
     Route: 030

REACTIONS (11)
  - ABDOMINAL PAIN UPPER [None]
  - CONSTIPATION [None]
  - DRUG INEFFECTIVE [None]
  - DRUG INTERACTION [None]
  - DYSURIA [None]
  - FATIGUE [None]
  - HAND FRACTURE [None]
  - HYPERSOMNIA [None]
  - LIVER DISORDER [None]
  - MEMORY IMPAIRMENT [None]
  - MOOD ALTERED [None]
